FAERS Safety Report 11273552 (Version 1)
Quarter: 2015Q3

REPORT INFORMATION
  Report Type: Spontaneous
  Country: US (occurrence: US)
  Receive Date: 20150715
  Receipt Date: 20150715
  Transmission Date: 20151125
  Serious: No
  Sender: FDA-Public Use
  Company Number: US-009507513-1507USA005428

PATIENT
  Age: 16 Year
  Sex: Female
  Weight: 70.3 kg

DRUGS (3)
  1. SERTRALINE HYDROCHLORIDE. [Concomitant]
     Active Substance: SERTRALINE HYDROCHLORIDE
  2. HYDROXYZINE [Concomitant]
     Active Substance: HYDROXYZINE\HYDROXYZINE HYDROCHLORIDE
  3. NEXPLANON [Suspect]
     Active Substance: ETONOGESTREL
     Indication: CONTRACEPTION
     Dosage: 3 YEARS
     Route: 059
     Dates: start: 20141110

REACTIONS (7)
  - Abdominal pain lower [Unknown]
  - Depression [Unknown]
  - Vaginal haemorrhage [Unknown]
  - Acne [Unknown]
  - Weight decreased [Unknown]
  - Peripheral embolism [Unknown]
  - Mood swings [Unknown]

NARRATIVE: CASE EVENT DATE: 20141110
